FAERS Safety Report 24779332 (Version 1)
Quarter: 2024Q4

REPORT INFORMATION
  Report Type: Spontaneous
  Country: CN (occurrence: CN)
  Receive Date: 20241226
  Receipt Date: 20241226
  Transmission Date: 20250115
  Serious: Yes (Other)
  Sender: ELI LILLY AND COMPANY
  Company Number: CN-Merck Healthcare KGaA-2024067750

PATIENT
  Age: 69 Year
  Sex: Male
  Weight: 65 kg

DRUGS (11)
  1. ERBITUX [Suspect]
     Active Substance: CETUXIMAB
     Indication: Pharyngeal cancer
     Dosage: 0.7 G, UNKNOWN
     Route: 041
     Dates: start: 20241015, end: 20241015
  2. ERBITUX [Suspect]
     Active Substance: CETUXIMAB
     Indication: Laryngeal cancer
     Dosage: 0.1 G, UNKNOWN
     Route: 041
     Dates: start: 20241015, end: 20241015
  3. CISPLATIN [Suspect]
     Active Substance: CISPLATIN
     Indication: Laryngeal cancer
     Dosage: UNK UNK, UNKNOWN
     Route: 041
     Dates: start: 20241016, end: 20241018
  4. CISPLATIN [Suspect]
     Active Substance: CISPLATIN
     Indication: Pharyngeal cancer
     Dosage: UNK UNK, UNKNOWN
     Route: 065
  5. FLUOROURACIL [Suspect]
     Active Substance: FLUOROURACIL
     Indication: Laryngeal cancer
     Dosage: UNK UNK, UNKNOWN
     Route: 041
     Dates: start: 20241015, end: 20241015
  6. FLUOROURACIL [Suspect]
     Active Substance: FLUOROURACIL
     Indication: Pharyngeal cancer
     Dosage: UNK UNK, UNKNOWN
     Route: 041
     Dates: start: 20241015, end: 20241015
  7. SODIUM CHLORIDE [Concomitant]
     Active Substance: SODIUM CHLORIDE
     Indication: Medication dilution
     Dosage: UNK
     Route: 041
     Dates: start: 20241015, end: 20241015
  8. SODIUM CHLORIDE [Concomitant]
     Active Substance: SODIUM CHLORIDE
     Dosage: UNK
     Route: 041
     Dates: start: 20241015, end: 20241015
  9. SODIUM CHLORIDE [Concomitant]
     Active Substance: SODIUM CHLORIDE
     Dosage: UNK
     Route: 041
     Dates: start: 20241015, end: 20241015
  10. SODIUM CHLORIDE [Concomitant]
     Active Substance: SODIUM CHLORIDE
     Dosage: UNK
     Route: 041
     Dates: start: 20241015, end: 20241015
  11. SODIUM CHLORIDE [Concomitant]
     Active Substance: SODIUM CHLORIDE
     Dosage: UNK
     Route: 041
     Dates: start: 20241016, end: 20241018

REACTIONS (1)
  - Myelosuppression [Recovering/Resolving]

NARRATIVE: CASE EVENT DATE: 20241019
